FAERS Safety Report 10040030 (Version 2)
Quarter: 2014Q1

REPORT INFORMATION
  Report Type: Spontaneous
  Country: US (occurrence: US)
  Receive Date: 20140326
  Receipt Date: 20140326
  Transmission Date: 20141002
  Serious: Yes (Disabling)
  Sender: FDA-Public Use
  Company Number: US-GE HEALTHCARE MEDICAL DIAGNOSTICS-OSCN-PR-0803S-0149

PATIENT
  Age: 58 Year
  Sex: Male

DRUGS (15)
  1. OMNISCAN [Suspect]
     Indication: BRAIN NEOPLASM
     Route: 042
     Dates: start: 20060402, end: 20060402
  2. OMNISCAN [Suspect]
     Route: 042
     Dates: start: 20060404, end: 20060404
  3. OMNISCAN [Suspect]
     Route: 042
     Dates: start: 20060424, end: 20060424
  4. OMNISCAN [Suspect]
     Route: 042
     Dates: start: 20060519, end: 20060519
  5. OMNISCAN [Suspect]
     Route: 042
     Dates: start: 20060616, end: 20060616
  6. OMNISCAN [Suspect]
     Route: 042
     Dates: start: 20060807, end: 20060807
  7. OMNISCAN [Suspect]
     Route: 042
     Dates: start: 20060830, end: 20060830
  8. OMNISCAN [Suspect]
     Route: 042
     Dates: start: 20061016, end: 20061016
  9. OMNISCAN [Suspect]
     Route: 042
     Dates: start: 20061113, end: 20061113
  10. MAGNEVIST [Suspect]
     Indication: NEOPLASM
     Route: 042
     Dates: start: 20050609, end: 20050609
  11. MAGNEVIST [Suspect]
     Indication: RENAL FAILURE CHRONIC
     Route: 042
     Dates: start: 20060315, end: 20060315
  12. MAGNEVIST [Suspect]
     Route: 042
     Dates: start: 20060705, end: 20060705
  13. METHOTREXATE [Concomitant]
  14. RITUXAN [Concomitant]
  15. TEMODAR [Concomitant]

REACTIONS (1)
  - Nephrogenic systemic fibrosis [Not Recovered/Not Resolved]
